FAERS Safety Report 4354551-9 (Version None)
Quarter: 2004Q2

REPORT INFORMATION
  Report Type: 
  Country: None (occurrence: None)
  Receive Date: 20040503
  Receipt Date: 20040418
  Transmission Date: 20050107
  Serious: Yes (Hospitalization)
  Sender: FDA-Public Use
  Company Number: 2004026268

PATIENT
  Age: 47 Year
  Sex: Male

DRUGS (6)
  1. VIAGRA [Suspect]
     Indication: ERECTILE DYSFUNCTION
     Dosage: UNK
     Route: 065
     Dates: start: 20030101
  2. GABAPENTIN [Concomitant]
  3. TRANDOLAPRIL [Concomitant]
  4. SPIRONOLACTONE [Concomitant]
  5. FUROSEMIDE [Concomitant]
  6. VICODIN [Concomitant]

REACTIONS (10)
  - ARTHROPOD BITE [None]
  - BACTERIAL INFECTION [None]
  - BLOOD POTASSIUM DECREASED [None]
  - CELLULITIS [None]
  - DRUG INEFFECTIVE [None]
  - LABORATORY TEST ABNORMAL [None]
  - PAIN IN EXTREMITY [None]
  - RED BLOOD CELL COUNT DECREASED [None]
  - WEIGHT DECREASED [None]
  - WHITE BLOOD CELL COUNT DECREASED [None]
